FAERS Safety Report 6411400-2 (Version None)
Quarter: 2009Q4

REPORT INFORMATION
  Report Type: 
  Country: None (occurrence: None)
  Receive Date: 20091023
  Receipt Date: 20091013
  Transmission Date: 20100525
  Serious: Yes (Hospitalization)
  Sender: FDA-Public Use
  Company Number: CA-JNJFOC-20090501777

PATIENT
  Sex: Female
  Weight: 89 kg

DRUGS (5)
  1. REMICADE [Suspect]
     Route: 042
  2. REMICADE [Suspect]
     Indication: CROHN'S DISEASE
     Route: 042
  3. GRAVOL TAB [Concomitant]
     Indication: NAUSEA
     Route: 030
  4. IMITREX [Concomitant]
     Indication: MIGRAINE
  5. PERCOCET [Concomitant]
     Indication: MIGRAINE

REACTIONS (5)
  - ALTERED STATE OF CONSCIOUSNESS [None]
  - DEHYDRATION [None]
  - MIGRAINE [None]
  - RENAL FAILURE ACUTE [None]
  - RESPIRATORY ARREST [None]
